FAERS Safety Report 22193332 (Version 5)
Quarter: 2024Q2

REPORT INFORMATION
  Report Type: Spontaneous
  Country: US (occurrence: US)
  Receive Date: 20230410
  Receipt Date: 20240402
  Transmission Date: 20240715
  Serious: No
  Sender: FDA-Public Use
  Company Number: US-PFIZER INC-PV202300063584

PATIENT
  Age: 68 Year
  Sex: Male
  Weight: 78.912 kg

DRUGS (1)
  1. XELJANZ [Suspect]
     Active Substance: TOFACITINIB CITRATE
     Dosage: UNK

REACTIONS (4)
  - Pain [Unknown]
  - Malaise [Unknown]
  - General physical health deterioration [Unknown]
  - Insomnia [Unknown]

NARRATIVE: CASE EVENT DATE: 20230404
